FAERS Safety Report 9528140 (Version 2)
Quarter: 2014Q2

REPORT INFORMATION
  Report Type: Spontaneous
  Country: TR (occurrence: TR)
  Receive Date: 20130917
  Receipt Date: 20140530
  Transmission Date: 20141212
  Serious: Yes (Hospitalization)
  Sender: FDA-Public Use
  Company Number: TR-JNJFOC-20130908339

PATIENT
  Age: 26 Year
  Sex: Female

DRUGS (5)
  1. XARELTO [Suspect]
     Indication: CEREBROVASCULAR ACCIDENT PROPHYLAXIS
     Route: 048
  2. XARELTO [Suspect]
     Indication: ATRIAL FIBRILLATION
     Route: 048
  3. DIDERAL [Concomitant]
     Route: 065
  4. TRACLEER [Concomitant]
     Route: 065
  5. REVATIO [Concomitant]
     Route: 065

REACTIONS (2)
  - Haemoptysis [Recovering/Resolving]
  - Platelet count decreased [Recovering/Resolving]
